FAERS Safety Report 9950483 (Version 2)
Quarter: 2014Q1

REPORT INFORMATION
  Report Type: Report from Study
  Country: US (occurrence: US)
  Receive Date: 20140304
  Receipt Date: 20140304
  Transmission Date: 20141002
  Serious: No
  Sender: FDA-Public Use
  Company Number: US-ABBVIE-13P-163-1056354-00

PATIENT
  Sex: Female
  Weight: 72.64 kg

DRUGS (2)
  1. HUMIRA [Suspect]
     Indication: SJOGREN^S SYNDROME
     Route: 058
     Dates: start: 201302
  2. PLAQUENIL [Concomitant]
     Indication: SJOGREN^S SYNDROME

REACTIONS (2)
  - Off label use [Not Recovered/Not Resolved]
  - Injection site pain [Recovered/Resolved]
